FAERS Safety Report 4488034-2 (Version None)
Quarter: 2004Q4

REPORT INFORMATION
  Report Type: 
  Country: None (occurrence: None)
  Receive Date: 20041028
  Receipt Date: 20041022
  Transmission Date: 20050328
  Serious: Yes (Hospitalization)
  Sender: FDA-Public Use
  Company Number: US-BRISTOL-MYERS SQUIBB COMPANY-12740726

PATIENT
  Sex: Female

DRUGS (3)
  1. CYTOXAN [Suspect]
     Indication: BREAST CANCER STAGE I
  2. DOXORUBICIN HCL [Suspect]
     Indication: BREAST CANCER STAGE I
  3. NEULASTA [Suspect]
     Indication: CHEMOTHERAPY
     Route: 058
     Dates: start: 20040908, end: 20040908

REACTIONS (2)
  - PULMONARY OEDEMA [None]
  - TACHYCARDIA [None]
